FAERS Safety Report 4309096-9 (Version None)
Quarter: 2004Q1

REPORT INFORMATION
  Report Type: 
  Country: None (occurrence: None)
  Receive Date: 20040302
  Receipt Date: 20040224
  Transmission Date: 20041129
  Serious: Yes (Other)
  Sender: FDA-Public Use
  Company Number: CA-GLAXOSMITHKLINE-A0499899A

PATIENT
  Age: 28 Year
  Sex: Female

DRUGS (2)
  1. LAMICTAL [Suspect]
     Indication: DRUG USE FOR UNKNOWN INDICATION
     Route: 048
  2. CELEXA [Concomitant]
     Dosage: 20MG PER DAY

REACTIONS (7)
  - DYSPHAGIA [None]
  - ERYTHEMA [None]
  - EYE IRRITATION [None]
  - MUCOSAL ULCERATION [None]
  - PYREXIA [None]
  - SKIN DESQUAMATION [None]
  - STEVENS-JOHNSON SYNDROME [None]
